FAERS Safety Report 26027321 (Version 1)
Quarter: 2025Q4

REPORT INFORMATION
  Report Type: Spontaneous
  Country: EU (occurrence: EU)
  Receive Date: 20251111
  Receipt Date: 20251111
  Transmission Date: 20260118
  Serious: Yes (Other)
  Sender: ALCON
  Company Number: None

PATIENT
  Age: 31 Year
  Sex: Female
  Weight: 65 kg

DRUGS (1)
  1. CYCLOPENTOLATE [Suspect]
     Active Substance: CYCLOPENTOLATE
     Indication: Fundoscopy
     Dosage: 6 DROP ONCE/SINGLE
     Route: 047
     Dates: start: 20251007, end: 20251007

REACTIONS (4)
  - Vertigo [Recovered/Resolved]
  - Presyncope [Recovered/Resolved]
  - Mydriasis [Recovered/Resolved]
  - Photophobia [Recovering/Resolving]

NARRATIVE: CASE EVENT DATE: 20251007
